FAERS Safety Report 5480467-0 (Version None)
Quarter: 2007Q4

REPORT INFORMATION
  Report Type: 
  Country: None (occurrence: None)
  Receive Date: 20071009
  Receipt Date: 20071002
  Transmission Date: 20080405
  Serious: Yes (Hospitalization, Other)
  Sender: FDA-Public Use
  Company Number: B0490229A

PATIENT
  Age: 78 Year
  Sex: Female

DRUGS (8)
  1. EPTIFIBATIDE [Suspect]
     Indication: ACUTE CORONARY SYNDROME
     Route: 042
     Dates: start: 20070619, end: 20070621
  2. HEPARIN [Suspect]
     Indication: ACUTE CORONARY SYNDROME
     Dosage: 70ML PER DAY
     Route: 058
     Dates: start: 20070618, end: 20070620
  3. ACETYLSALICYLIC ACID [Suspect]
     Indication: ACUTE CORONARY SYNDROME
     Dosage: 100MG PER DAY
     Route: 048
     Dates: start: 20070619
  4. CLOPIDOGREL [Suspect]
     Indication: ACUTE CORONARY SYNDROME
     Route: 065
     Dates: start: 20070620
  5. ANTIDIABETIC (UNSPECIFIED) [Concomitant]
     Route: 048
  6. FLUOXETINE [Concomitant]
  7. RIVOTRIL [Concomitant]
  8. ALPRAZOLAM [Concomitant]

REACTIONS (3)
  - HAEMATOMA [None]
  - HAEMORRHAGE [None]
  - VASCULAR PSEUDOANEURYSM [None]
